FAERS Safety Report 6299473-1 (Version None)
Quarter: 2009Q3

REPORT INFORMATION
  Report Type: 
  Country: None (occurrence: None)
  Receive Date: 20090806
  Receipt Date: 20090731
  Transmission Date: 20100115
  Serious: Yes (Hospitalization)
  Sender: FDA-Public Use
  Company Number: B0579062A

PATIENT
  Age: 10 Year
  Sex: Female
  Weight: 16 kg

DRUGS (5)
  1. LAMICTAL [Suspect]
     Indication: CONVULSION
     Route: 048
     Dates: start: 20090515, end: 20090612
  2. SELENICA-R [Concomitant]
     Indication: CONVULSION
     Dosage: 500MG PER DAY
     Route: 048
  3. TOPIRAMATE [Concomitant]
     Indication: CONVULSION
     Dosage: 100MG PER DAY
     Route: 048
  4. RIVOTRIL [Concomitant]
     Indication: CONVULSION
     Dosage: .7MG PER DAY
     Route: 048
  5. THYRADIN [Concomitant]
     Indication: HYPOTHYROIDISM
     Dosage: 40MCG PER DAY
     Route: 048

REACTIONS (5)
  - ERYTHEMA MULTIFORME [None]
  - HYPOPHAGIA [None]
  - LYMPHADENOPATHY [None]
  - PYREXIA [None]
  - RASH [None]
